FAERS Safety Report 11093294 (Version 4)
Quarter: 2015Q3

REPORT INFORMATION
  Report Type: Report from Study
  Country: US (occurrence: US)
  Receive Date: 20150428
  Receipt Date: 20150924
  Transmission Date: 20151125
  Serious: Yes (Life-Threatening, Hospitalization, Other)
  Sender: FDA-Public Use
  Company Number: PHEH2015US003885

PATIENT
  Age: 37 Year
  Sex: Male
  Weight: 102 kg

DRUGS (3)
  1. GILENYA [Suspect]
     Active Substance: FINGOLIMOD HYDROCHLORIDE
     Indication: RELAPSING-REMITTING MULTIPLE SCLEROSIS
     Dosage: 0.5 MG, QD
     Route: 048
     Dates: start: 20120615, end: 201502
  2. TYSABRI [Concomitant]
     Active Substance: NATALIZUMAB
     Indication: PRODUCT USED FOR UNKNOWN INDICATION
     Dosage: 300 MG, QMO
     Route: 042
     Dates: start: 201007, end: 201207
  3. COPAXONE [Concomitant]
     Active Substance: GLATIRAMER ACETATE
     Indication: PRODUCT USED FOR UNKNOWN INDICATION
     Dosage: 20 MG, QD
     Route: 058

REACTIONS (28)
  - Generalised tonic-clonic seizure [Recovered/Resolved]
  - Nausea [Unknown]
  - Status epilepticus [Unknown]
  - Mitral valve prolapse [Unknown]
  - Intervertebral disc disorder [Unknown]
  - Cholelithiasis [Unknown]
  - Alanine aminotransferase increased [Unknown]
  - Nasopharyngitis [Unknown]
  - Mental status changes [Unknown]
  - Aphasia [Unknown]
  - Oedema [Unknown]
  - Aspartate aminotransferase increased [Unknown]
  - Speech disorder [Unknown]
  - Brain abscess [Recovered/Resolved]
  - Atrial septal defect [Unknown]
  - Intervertebral disc degeneration [Unknown]
  - Headache [Unknown]
  - Bacterial abscess central nervous system [Unknown]
  - Pancreatic disorder [Unknown]
  - Vomiting [Unknown]
  - Muscular weakness [Unknown]
  - Intervertebral disc protrusion [Unknown]
  - Swelling [Unknown]
  - Hepatosplenomegaly [Unknown]
  - Liver function test abnormal [Unknown]
  - Confusional state [Unknown]
  - Asthenia [Unknown]
  - Pyrexia [Unknown]

NARRATIVE: CASE EVENT DATE: 20150210
